FAERS Safety Report 4797996-5 (Version None)
Quarter: 2005Q3

REPORT INFORMATION
  Report Type: 
  Country: None (occurrence: None)
  Receive Date: 20050929
  Receipt Date: 20050817
  Transmission Date: 20060218
  Serious: No
  Sender: FDA-Public Use
  Company Number: 05P-163-0308693

PATIENT
  Age: 60 Year
  Sex: Female
  Weight: 48.5349 kg

DRUGS (7)
  1. HUMIRA [Suspect]
     Indication: RHEUMATOID ARTHRITIS
     Dosage: 40 MG, 1 IN 2 WK, SUBCUTANEOUS
     Route: 058
     Dates: start: 20050601, end: 20050816
  2. KETOROLAC TROMETHAMINE [Suspect]
     Indication: JOINT SWELLING
     Dosage: INJECTION
     Dates: start: 20050701, end: 20050701
  3. MOXIFLOXACIN HYDROCHLORIDE [Suspect]
     Indication: JOINT SWELLING
     Dates: start: 20050701, end: 20050701
  4. METHOTREXATE SODIUM [Concomitant]
  5. FOLIC ACID [Concomitant]
  6. MULTI-VITAMINS [Concomitant]
  7. ALENDRONATE SODIUM [Concomitant]

REACTIONS (2)
  - JOINT SWELLING [None]
  - RASH MACULAR [None]
